FAERS Safety Report 25009017 (Version 2)
Quarter: 2025Q2

REPORT INFORMATION
  Report Type: Spontaneous
  Country: US (occurrence: US)
  Receive Date: 20250225
  Receipt Date: 20250422
  Transmission Date: 20250717
  Serious: No
  Sender: BLUEPRINT MEDICINES
  Company Number: US-Blueprint Medicines Corporation-2025-AER-00347

PATIENT
  Age: 58 Year
  Sex: Female

DRUGS (1)
  1. AYVAKIT [Suspect]
     Active Substance: AVAPRITINIB
     Indication: Histiocytic sarcoma
     Route: 065
     Dates: start: 20240708

REACTIONS (5)
  - Skin disorder [Unknown]
  - Eczema [Unknown]
  - Exfoliative rash [Unknown]
  - Pruritus [Unknown]
  - Rash macular [Unknown]
